FAERS Safety Report 9816055 (Version 1)
Quarter: 2014Q1

REPORT INFORMATION
  Report Type: Spontaneous
  Country: CA (occurrence: CA)
  Receive Date: 20140114
  Receipt Date: 20140114
  Transmission Date: 20141002
  Serious: Yes (Death, Other)
  Sender: FDA-Public Use
  Company Number: CA-ELI_LILLY_AND_COMPANY-CA201401003627

PATIENT
  Age: 7 Year
  Sex: Female

DRUGS (1)
  1. ZYPREXA [Suspect]
     Indication: PRODUCT USED FOR UNKNOWN INDICATION
     Dosage: 1 DF, UNKNOWN
     Route: 065

REACTIONS (6)
  - Cardiac arrest [Fatal]
  - Weight decreased [Unknown]
  - Aggression [Unknown]
  - Psychomotor hyperactivity [Unknown]
  - General physical health deterioration [Unknown]
  - Off label use [Unknown]
